FAERS Safety Report 8549359-4 (Version None)
Quarter: 2012Q3

REPORT INFORMATION
  Report Type: 
  Country: None (occurrence: None)
  Receive Date: 20120730
  Receipt Date: 20120727
  Transmission Date: 20120928
  Serious: Yes (Hospitalization, Other)
  Sender: FDA-Public Use
  Company Number: US-ROCHE-1048063

PATIENT
  Sex: Female
  Weight: 72.2 kg

DRUGS (4)
  1. PERTUZUMAB [Suspect]
     Indication: BREAST CANCER METASTATIC
     Dosage: LAST DOSE PRIOR TO SAE: 16/MAR/2012
     Route: 042
     Dates: start: 20111216
  2. FONDAPARINUX SODIUM [Suspect]
     Indication: PRODUCT USED FOR UNKNOWN INDICATION
     Route: 058
     Dates: start: 20120309
  3. TRASTUZUMAB EMTANSINE [Suspect]
     Indication: BREAST CANCER METASTATIC
     Dosage: LAST DOSE PRIOR TO SAE: 16/MAR/2012
     Route: 042
     Dates: start: 20111216
  4. PACLITAXEL [Suspect]
     Indication: BREAST CANCER METASTATIC
     Dosage: LAST DOSE PRIOR TO SAE 10 FEB 2012
     Route: 042
     Dates: start: 20111216

REACTIONS (2)
  - EPISTAXIS [None]
  - THROMBOSIS IN DEVICE [None]
